FAERS Safety Report 10071535 (Version 2)
Quarter: 2014Q2

REPORT INFORMATION
  Report Type: Spontaneous
  Country: US (occurrence: US)
  Receive Date: 20140410
  Receipt Date: 20140410
  Transmission Date: 20141212
  Serious: No
  Sender: FDA-Public Use
  Company Number: US-BRISTOL-MYERS SQUIBB COMPANY-19925239

PATIENT
  Age: 47 Year
  Sex: Male
  Weight: 72.56 kg

DRUGS (6)
  1. NULOJIX [Suspect]
     Indication: RENAL TRANSPLANT
     Dosage: INJ.?LAST DOSE:04NOV2013
     Dates: start: 20130614, end: 20131213
  2. NORVASC [Concomitant]
     Dosage: 5 MG
  3. LOPRESSOR [Concomitant]
     Dosage: 50 MG
  4. MAGNESIUM CHLORIDE [Concomitant]
  5. VITAMIN D [Concomitant]
     Dosage: 1DF= 1000 UNITS
  6. PROGRAF [Concomitant]

REACTIONS (1)
  - Dermatitis psoriasiform [Unknown]
